FAERS Safety Report 12375126 (Version 1)
Quarter: 2016Q2

REPORT INFORMATION
  Report Type: Spontaneous
  Country: US (occurrence: US)
  Receive Date: 20160517
  Receipt Date: 20160517
  Transmission Date: 20160815
  Serious: Yes (Other)
  Sender: FDA-Public Use
  Company Number: US-MDT-ADR-2016-00026

PATIENT
  Age: 8 Year
  Sex: Male

DRUGS (13)
  1. GLYCOLAX [Suspect]
     Active Substance: POLYETHYLENE GLYCOL 3350
  2. LIORESAL [Suspect]
     Active Substance: BACLOFEN
     Dosage: 649.2MCG/DAY
     Route: 037
     Dates: start: 20130219
  3. LIORESAL [Suspect]
     Active Substance: BACLOFEN
     Dosage: 681.7MCGDAY
     Route: 037
     Dates: start: 20160104
  4. VALPROATE [Suspect]
     Active Substance: VALPROIC ACID
  5. DULCOLAX NOS [Suspect]
     Active Substance: BISACODYL OR DOCUSATE SODIUM
  6. MELATONIN [Suspect]
     Active Substance: MELATONIN
  7. ONFI [Suspect]
     Active Substance: CLOBAZAM
  8. LEVOCARNITINE. [Suspect]
     Active Substance: LEVOCARNITINE
  9. PULMICORT TURBUHALER [Suspect]
     Active Substance: BUDESONIDE
  10. ZANTAC [Suspect]
     Active Substance: RANITIDINE HYDROCHLORIDE
  11. BENEPROTEIN [Suspect]
     Active Substance: DIETARY SUPPLEMENT
  12. COGENTIN [Suspect]
     Active Substance: BENZTROPINE MESYLATE
  13. PHENOBARBITAL. [Suspect]
     Active Substance: PHENOBARBITAL

REACTIONS (2)
  - Muscle tightness [Unknown]
  - Seizure [Unknown]

NARRATIVE: CASE EVENT DATE: 201512
